FAERS Safety Report 10077229 (Version 2)
Quarter: 2014Q2

REPORT INFORMATION
  Report Type: Spontaneous
  Country: US (occurrence: US)
  Receive Date: 20140414
  Receipt Date: 20140414
  Transmission Date: 20141212
  Serious: No
  Sender: FDA-Public Use
  Company Number: US-BANPHARM-20131027

PATIENT
  Age: 76 Year
  Sex: Female
  Weight: 83.91 kg

DRUGS (7)
  1. ALEVE LIQUID GELS 220MG [Suspect]
     Indication: NECK PAIN
     Route: 048
     Dates: start: 20130213
  2. BAYER 81 MG ENTERIC ASPIRIN [Concomitant]
     Indication: CARDIOVASCULAR EVENT PROPHYLAXIS
     Dosage: 1 DF,
     Route: 048
  3. VASOTEC [Concomitant]
  4. DIPENTENE [Concomitant]
  5. OCUVITE [Concomitant]
  6. CARDIZEM [Concomitant]
  7. MERCAPTOPURINE [Concomitant]

REACTIONS (1)
  - Drug effect incomplete [Unknown]
